FAERS Safety Report 6732465 (Version 7)
Quarter: 2013Q1

REPORT INFORMATION
  Report Type: Spontaneous
  Country: US (occurrence: US)
  Receive Date: 20080821
  Receipt Date: 20130306
  Transmission Date: 20140127
  Serious: Yes (Hospitalization, Other)
  Sender: FDA-Public Use
  Company Number: PHEH2008US07166

PATIENT
  Age: 58 Year
  Sex: Female

DRUGS (58)
  1. ZOMETA [Suspect]
     Dates: start: 2001, end: 200502
  2. CHEMOTHERAPEUTICS NOS [Concomitant]
  3. DECADRON                                /CAN/ [Concomitant]
  4. SINGULAIR [Concomitant]
  5. KEFLEX                                  /UNK/ [Concomitant]
     Dosage: 500 MG, QID
  6. VICODIN [Concomitant]
  7. PERIDEX [Concomitant]
  8. DOXYCYCLINE [Concomitant]
     Dosage: 100 MG, BID
  9. PREDNISONE [Concomitant]
  10. ALBUTEROL [Concomitant]
  11. XELODA [Concomitant]
     Indication: BREAST CANCER
  12. CIPROFLOXACIN [Concomitant]
  13. PROCHLORPERAZINE [Concomitant]
  14. QVAR [Concomitant]
  15. NASAREL [Concomitant]
  16. PREVIDENT [Concomitant]
  17. LIDOCAINE [Concomitant]
  18. FENTANYL [Concomitant]
  19. MORPHINE [Concomitant]
  20. METOCLOPRAMIDE [Concomitant]
  21. ANZEMET [Concomitant]
  22. ZOFRAN [Concomitant]
  23. DEMEROL [Concomitant]
  24. VERSED [Concomitant]
  25. HYDROCORTISONE [Concomitant]
     Route: 061
  26. TYLENOL [Concomitant]
  27. TORADOL [Concomitant]
  28. NARCAN [Concomitant]
  29. ROMAZICON [Concomitant]
  30. SOLU-MEDROL [Concomitant]
  31. AVELOX [Concomitant]
  32. METRONIDAZOLE [Concomitant]
  33. NYSTATIN [Concomitant]
  34. LEVAQUIN [Concomitant]
  35. CEPHALEXIN [Concomitant]
  36. PROCRIT                            /00909301/ [Concomitant]
  37. NORCO [Concomitant]
  38. ATROPINE [Concomitant]
  39. LACTULOSE [Concomitant]
  40. FUROSEMIDE [Concomitant]
  41. TAXOTERE [Concomitant]
     Indication: BREAST CANCER
  42. PROAIR (FLUTICASONE PROPIONATE) [Concomitant]
  43. TEMAZEPAM [Concomitant]
  44. ENSURE [Concomitant]
  45. DIAZEPAM [Concomitant]
  46. MEGESTROL [Concomitant]
  47. ENDOCET [Concomitant]
  48. SEREVENT [Concomitant]
  49. AMOXICILLIN [Concomitant]
  50. FASLODEX [Concomitant]
     Indication: BREAST CANCER
  51. TAMOXIFEN [Concomitant]
     Indication: BREAST CANCER
  52. ARIMIDEX ^ASTRAZENECA^ [Concomitant]
     Indication: BREAST CANCER
  53. AROMASIN [Concomitant]
     Indication: BREAST CANCER
  54. IXABEPILONE [Concomitant]
     Indication: BREAST CANCER
  55. FLUID/ELECTROLYTE REPLACEMENT THERAPY [Concomitant]
  56. GEMZAR [Concomitant]
     Indication: BREAST CANCER
  57. LACTINEX [Concomitant]
  58. CHERATUSSIN [Concomitant]

REACTIONS (48)
  - Osteonecrosis of jaw [Unknown]
  - Injury [Unknown]
  - Pain [Unknown]
  - Anxiety [Unknown]
  - Anhedonia [Unknown]
  - Mental disorder [Unknown]
  - Physical disability [Unknown]
  - Exostosis of jaw [Unknown]
  - Exposed bone in jaw [Unknown]
  - Fistula discharge [Unknown]
  - Pain in jaw [Unknown]
  - Swelling [Unknown]
  - Osteomyelitis [Unknown]
  - Oral infection [Unknown]
  - Breath odour [Unknown]
  - Tooth abscess [Recovered/Resolved]
  - Jaw fracture [Unknown]
  - Loose tooth [Unknown]
  - Pathological fracture [Recovering/Resolving]
  - Metastases to bone [Unknown]
  - Metastases to liver [Unknown]
  - Metastases to lung [Unknown]
  - Anaemia [Unknown]
  - Oral papilloma [Unknown]
  - Adrenal insufficiency [Unknown]
  - Polyneuropathy [Unknown]
  - Lymphoedema [Unknown]
  - Parotitis [Unknown]
  - Osteopenia [Unknown]
  - Squamous cell carcinoma of skin [Unknown]
  - Second primary malignancy [Unknown]
  - Cachexia [Unknown]
  - Dysphagia [Unknown]
  - Atelectasis [Unknown]
  - Metastases to chest wall [Unknown]
  - Metastases to retroperitoneum [Unknown]
  - Conjunctival haemorrhage [Unknown]
  - Lymphangitis [Recovering/Resolving]
  - Pancytopenia [Unknown]
  - Dizziness [Unknown]
  - Sinusitis [Unknown]
  - Rhinitis allergic [Unknown]
  - Swelling face [Unknown]
  - Fatigue [Unknown]
  - Abdominal pain [Unknown]
  - Trismus [Unknown]
  - Bone fragmentation [Unknown]
  - Oral cavity fistula [Unknown]
